FAERS Safety Report 6961739-7 (Version None)
Quarter: 2010Q3

REPORT INFORMATION
  Report Type: 
  Country: None (occurrence: None)
  Receive Date: 20100901
  Receipt Date: 20100820
  Transmission Date: 20110219
  Serious: No
  Sender: FDA-Public Use
  Company Number: US-AMGEN-KDL432900

PATIENT
  Sex: Female

DRUGS (15)
  1. PROLIA [Suspect]
     Indication: PRODUCT USED FOR UNKNOWN INDICATION
     Dates: start: 20100601
  2. AMLODIPINE [Concomitant]
  3. LIPITOR [Concomitant]
  4. CALCIUM [Concomitant]
  5. ERGOCALCIFEROL [Concomitant]
  6. KLONOPIN [Concomitant]
  7. UNSPECIFIED STEROIDS [Concomitant]
  8. FENTANYL CITRATE [Concomitant]
  9. LASIX [Concomitant]
  10. NEURONTIN [Concomitant]
  11. GLIPIZIDE [Concomitant]
  12. LEVOTHYROXINE [Concomitant]
  13. ACTONEL [Concomitant]
  14. ZOLOFT [Concomitant]
  15. COUMADIN [Concomitant]

REACTIONS (3)
  - CELLULITIS [None]
  - ERYTHEMA [None]
  - OEDEMA PERIPHERAL [None]
